FAERS Safety Report 6633896-3 (Version None)
Quarter: 2010Q1

REPORT INFORMATION
  Report Type: 
  Country: None (occurrence: None)
  Receive Date: 20100315
  Receipt Date: 20100304
  Transmission Date: 20100710
  Serious: Yes (Other)
  Sender: FDA-Public Use
  Company Number: US-ELI_LILLY_AND_COMPANY-US201003001708

PATIENT
  Sex: Female

DRUGS (3)
  1. HUMALOG [Suspect]
     Indication: DIABETES MELLITUS
     Dosage: UNK, AS NEEDED
     Dates: start: 20100101
  2. HUMALOG [Suspect]
     Dosage: UNK, AS NEEDED
     Dates: end: 20100101
  3. LANTUS [Concomitant]
     Indication: DIABETES MELLITUS
     Dosage: 18 U, UNK
     Dates: start: 19900101

REACTIONS (2)
  - BLOOD GLUCOSE INCREASED [None]
  - DIALYSIS [None]
